FAERS Safety Report 16985163 (Version 1)
Quarter: 2019Q4

REPORT INFORMATION
  Report Type: Spontaneous
  Country: US (occurrence: US)
  Receive Date: 20190917
  Receipt Date: 20190917
  Transmission Date: 20200122
  Serious: Yes (Hospitalization)
  Sender: FDA-Public Use
  Company Number: None

PATIENT
  Age: 64 Year
  Sex: Female
  Weight: 66.2 kg

DRUGS (14)
  1. ONDANSETRON [Concomitant]
     Active Substance: ONDANSETRON
  2. APIXABAN [Suspect]
     Active Substance: APIXABAN
     Route: 048
     Dates: start: 20181227
  3. ROSUVASTATIN. [Concomitant]
     Active Substance: ROSUVASTATIN
  4. GABAPENTIN. [Concomitant]
     Active Substance: GABAPENTIN
  5. LUBIPROSTONE [Concomitant]
     Active Substance: LUBIPROSTONE
  6. SERTRALINE [Concomitant]
     Active Substance: SERTRALINE HYDROCHLORIDE
  7. BEVACIZUMAB. [Concomitant]
     Active Substance: BEVACIZUMAB
  8. LANSOPRAZOLE. [Concomitant]
     Active Substance: LANSOPRAZOLE
  9. LISINOPRIL. [Concomitant]
     Active Substance: LISINOPRIL
  10. ALPRAZOLAM. [Concomitant]
     Active Substance: ALPRAZOLAM
  11. APIXABAN [Suspect]
     Active Substance: APIXABAN
     Route: 048
     Dates: start: 20181227
  12. FLUTICASONE. [Concomitant]
     Active Substance: FLUTICASONE
  13. ASPIRIN. [Concomitant]
     Active Substance: ASPIRIN
  14. LEVETIRACETAM. [Concomitant]
     Active Substance: LEVETIRACETAM

REACTIONS (7)
  - Nausea [None]
  - Hypoalbuminaemia [None]
  - Cholecystitis [None]
  - Weight decreased [None]
  - Disease recurrence [None]
  - Leukocytosis [None]
  - Obstructive pancreatitis [None]

NARRATIVE: CASE EVENT DATE: 20190916
